FAERS Safety Report 7619750-9 (Version None)
Quarter: 2011Q3

REPORT INFORMATION
  Report Type: 
  Country: None (occurrence: None)
  Receive Date: 20110719
  Receipt Date: 20110713
  Transmission Date: 20111222
  Serious: No
  Sender: FDA-Public Use
  Company Number: US-B.I. PHARMACEUTICALS,INC./RIDGEFIELD-2011-BP-13802BP

PATIENT
  Age: 72 Year
  Sex: Female

DRUGS (14)
  1. ERYTHROMYCIN [Suspect]
     Indication: BRONCHITIS
     Dosage: 250 MG
     Route: 048
     Dates: start: 20110529, end: 20110607
  2. METOPROLOL SUCCINATE EXTENDED RELEASE [Concomitant]
     Indication: HYPERTENSION
     Dosage: 200 MG
     Route: 048
  3. HYDROCHLOROTHIAZIDE [Concomitant]
     Indication: HYPERTENSION
     Dosage: 25 MG
     Route: 048
  4. LEVOXYL [Concomitant]
     Indication: HYPOTHYROIDISM
     Dosage: 50 MCG
     Route: 048
  5. DIAZEPAM [Concomitant]
     Indication: ANXIETY
     Dosage: 5 MG
     Route: 048
  6. RESTORIL [Concomitant]
  7. DIGOXIN [Concomitant]
     Indication: ATRIAL FIBRILLATION
     Dosage: 125 MG
     Route: 048
  8. VITAMIN TAB [Concomitant]
     Route: 048
  9. CALCIUM CARBONATE [Concomitant]
     Route: 048
  10. PRADAXA [Suspect]
     Indication: ATRIAL FIBRILLATION
     Dosage: 300 MG
     Route: 048
     Dates: start: 20110523
  11. GLUCOTROL [Concomitant]
     Indication: DIABETES MELLITUS
     Dosage: 0.5 MG
     Route: 048
  12. TEMAZEPAM [Concomitant]
     Indication: INSOMNIA
     Route: 048
  13. LISINOPRIL [Concomitant]
     Indication: HYPERTENSION
     Dosage: 40 MG
  14. SYNTHROID [Concomitant]
     Indication: HYPOTHYROIDISM
     Dosage: 50 MG
     Route: 048

REACTIONS (4)
  - RASH [None]
  - DIARRHOEA [None]
  - URTICARIA [None]
  - TONGUE PRURITUS [None]
